FAERS Safety Report 18538332 (Version 1)
Quarter: 2020Q4

REPORT INFORMATION
  Report Type: Spontaneous
  Country: DE (occurrence: DE)
  Receive Date: 20201123
  Receipt Date: 20201123
  Transmission Date: 20210114
  Serious: Yes (Life-Threatening, Hospitalization)
  Sender: FDA-Public Use
  Company Number: NVSC2020DE283997

PATIENT
  Sex: Male
  Weight: 104 kg

DRUGS (5)
  1. GRANISETRON [Concomitant]
     Active Substance: GRANISETRON
     Indication: PREMEDICATION
     Dosage: 1 MG, QD
     Route: 042
     Dates: start: 20200831
  2. FOLINIC ACID [Concomitant]
     Active Substance: LEUCOVORIN
     Indication: COLON CANCER
     Dosage: UNK
     Route: 065
     Dates: start: 202006
  3. FLUOR-URACIL [Concomitant]
     Active Substance: FLUOROURACIL
     Indication: COLON CANCER
     Dosage: UNK
     Route: 065
     Dates: start: 202006
  4. OXALIPLATIN HEXAL [Suspect]
     Active Substance: OXALIPLATIN
     Indication: COLON CANCER
     Dosage: 190 MG, QD
     Route: 042
     Dates: start: 20200831
  5. DEXAMETHASONE. [Concomitant]
     Active Substance: DEXAMETHASONE
     Indication: PREMEDICATION
     Dosage: 8 MG, QD
     Route: 042
     Dates: start: 20200831

REACTIONS (2)
  - Cardiac arrest [Unknown]
  - Septic shock [Unknown]

NARRATIVE: CASE EVENT DATE: 20200831
